FAERS Safety Report 4548445-3 (Version None)
Quarter: 2004Q4

REPORT INFORMATION
  Report Type: 
  Country: None (occurrence: None)
  Receive Date: 20041227
  Receipt Date: 20041025
  Transmission Date: 20050328
  Serious: Yes (Hospitalization)
  Sender: FDA-Public Use
  Company Number: 04P-163-0278438-00

PATIENT
  Age: 69 Year
  Sex: Male
  Weight: 69.4003 kg

DRUGS (7)
  1. HUMIRA [Suspect]
     Indication: RHEUMATOID ARTHRITIS
     Dosage: 40 MG, 1 IN 2 WK, SUBCUTANEOUS
     Route: 058
     Dates: start: 20030620
  2. FLUOXETINE HYDROCHLORIDE [Concomitant]
  3. OXYCOCET [Concomitant]
  4. ZOCOR [Concomitant]
  5. OMEPRAZOLE [Concomitant]
  6. LIDODERM PATCH [Concomitant]
  7. OXYCONTIN [Concomitant]

REACTIONS (1)
  - DYSPNOEA [None]
